FAERS Safety Report 15929781 (Version 10)
Quarter: 2023Q1

REPORT INFORMATION
  Report Type: Spontaneous
  Country: None (occurrence: CA)
  Receive Date: 20190206
  Receipt Date: 20230102
  Transmission Date: 20230417
  Serious: Yes (Hospitalization, Other)
  Sender: FDA-Public Use
  Company Number: CA-ASCEND THERAPEUTICS-2062251

PATIENT
  Age: 52 Year
  Sex: Female

DRUGS (25)
  1. ESTROGEL [Suspect]
     Active Substance: ESTRADIOL
     Indication: Product used for unknown indication
     Route: 065
  2. ESTROGEL [Suspect]
     Active Substance: ESTRADIOL
  3. CLARITIN [Concomitant]
     Active Substance: LORATADINE
     Route: 065
  4. CRINONE [Suspect]
     Active Substance: PROGESTERONE
     Route: 065
  5. BUDESONIDE [Concomitant]
     Active Substance: BUDESONIDE
     Route: 065
  6. PRASTERONE [Suspect]
     Active Substance: PRASTERONE
     Route: 067
  7. LORATADINE [Concomitant]
     Active Substance: LORATADINE
     Route: 065
  8. PROMETRIUM [Suspect]
     Active Substance: PROGESTERONE
     Route: 065
  9. PRASTERONE [Suspect]
     Active Substance: PRASTERONE
     Route: 067
  10. CLARITIN [Suspect]
     Active Substance: LORATADINE
     Route: 048
  11. GLICLAZIDE [Concomitant]
     Active Substance: GLICLAZIDE
     Route: 065
  12. PROGESTERONE [Suspect]
     Active Substance: PROGESTERONE
     Route: 067
  13. THYROID [Suspect]
     Active Substance: LEVOTHYROXINE\LIOTHYRONINE
     Route: 065
  14. INTRAROSA [Suspect]
     Active Substance: PRASTERONE
     Route: 065
  15. BUDESONIDE [Suspect]
     Active Substance: BUDESONIDE
     Route: 065
  16. CLARITIN ALLERGY + SINUS(PSEUDOEPHEDRINE SULFATE, LORATADINE) [Concomitant]
     Route: 048
  17. ESTROGEL [Suspect]
     Active Substance: ESTRADIOL
     Route: 065
  18. LORATADINE [Suspect]
     Active Substance: LORATADINE
     Route: 048
  19. LORATADINE [Suspect]
     Active Substance: LORATADINE
     Route: 048
  20. LORATADINE [Suspect]
     Active Substance: LORATADINE
     Route: 048
  21. PRASTERONE [Suspect]
     Active Substance: PRASTERONE
     Route: 067
  22. PRASTERONE [Suspect]
     Active Substance: PRASTERONE
     Route: 065
  23. PRASTERONE [Suspect]
     Active Substance: PRASTERONE
     Route: 065
  24. BUDESONIDE [Suspect]
     Active Substance: BUDESONIDE
     Route: 055
  25. BUDESONIDE [Suspect]
     Active Substance: BUDESONIDE
     Route: 065

REACTIONS (12)
  - Cellulitis [Unknown]
  - Photosensitivity reaction [Unknown]
  - Butterfly rash [Unknown]
  - Swelling face [Unknown]
  - Periorbital oedema [Unknown]
  - Tinnitus [Unknown]
  - Feeling hot [Unknown]
  - Head discomfort [Unknown]
  - Rash [Unknown]
  - Product use in unapproved indication [None]
  - Off label use [Unknown]
  - Headache [Unknown]
